FAERS Safety Report 7272108-7 (Version None)
Quarter: 2010Q4

REPORT INFORMATION
  Report Type: 
  Country: None (occurrence: None)
  Receive Date: 20101130
  Receipt Date: 20100816
  Transmission Date: 20110411
  Serious: Yes (Hospitalization)
  Sender: FDA-Public Use
  Company Number: 2008-179102-NL

PATIENT
  Age: 35 Year
  Sex: Female
  Weight: 117.5 kg

DRUGS (6)
  1. NUVARING [Suspect]
     Indication: PRODUCT USED FOR UNKNOWN INDICATION
     Dosage: VAG
     Route: 067
     Dates: start: 20070326, end: 20070525
  2. WARFARIN SODIUM [Concomitant]
  3. ALBUTEROL [Concomitant]
  4. MULTI-VITAMINS [Concomitant]
  5. TYLENOL [Concomitant]
  6. MOTRIN [Concomitant]

REACTIONS (2)
  - DEEP VEIN THROMBOSIS [None]
  - PULMONARY EMBOLISM [None]
